FAERS Safety Report 15956855 (Version 1)
Quarter: 2019Q1

REPORT INFORMATION
  Report Type: Spontaneous
  Country: NL (occurrence: NL)
  Receive Date: 20190213
  Receipt Date: 20190213
  Transmission Date: 20190417
  Serious: Yes (Other)
  Sender: FDA-Public Use
  Company Number: NL-SEPTODONT-201905020

PATIENT
  Age: 40 Year
  Sex: Female
  Weight: 72 kg

DRUGS (4)
  1. SEPTANEST SP [Suspect]
     Active Substance: ARTICAINE HYDROCHLORIDE\EPINEPHRINE BITARTRATE
     Indication: DENTAL LOCAL ANAESTHESIA
     Dosage: 6 INJECTIONS WITH 1 CARPULE
     Route: 004
     Dates: start: 20190125
  2. CALCI-BONED3 [Concomitant]
     Indication: GASTRIC BYPASS
     Route: 065
     Dates: start: 2017
  3. FIT FOR ME WLS FORTE [Concomitant]
     Indication: GASTRIC BYPASS
     Dates: start: 2017
  4. BECLOMETASON [Concomitant]
     Active Substance: BECLOMETHASONE DIPROPIONATE
     Indication: RHINORRHOEA
     Route: 065
     Dates: start: 2012

REACTIONS (3)
  - Injection site necrosis [Not Recovered/Not Resolved]
  - Injection site pain [Not Recovered/Not Resolved]
  - Injection site discomfort [Unknown]

NARRATIVE: CASE EVENT DATE: 20190125
